FAERS Safety Report 4995658-2 (Version None)
Quarter: 2006Q2

REPORT INFORMATION
  Report Type: 
  Country: None (occurrence: None)
  Receive Date: 20060504
  Receipt Date: 20060424
  Transmission Date: 20061013
  Serious: Yes (Hospitalization, Other)
  Sender: FDA-Public Use
  Company Number: 2005160402

PATIENT
  Age: 47 Year
  Sex: Male

DRUGS (11)
  1. LIPITOR [Suspect]
     Indication: ILL-DEFINED DISORDER
     Dosage: 40 MG (40 MG, 1 IN 1 D)
     Dates: end: 20051101
  2. LOPRESSOR [Concomitant]
  3. PROTONIX [Concomitant]
  4. LISINOPRIL [Concomitant]
  5. RESTORIL [Concomitant]
  6. METOPROLOL SUCCINATE [Concomitant]
  7. INDOMETHACIN [Concomitant]
  8. HYDROCODONE BITARTRATE [Concomitant]
  9. IBUPROFEN [Concomitant]
  10. ZOLOFT [Concomitant]
  11. XANAX [Concomitant]

REACTIONS (18)
  - BEREAVEMENT REACTION [None]
  - BLOOD CREATINE PHOSPHOKINASE MB INCREASED [None]
  - BLOOD THYROID STIMULATING HORMONE INCREASED [None]
  - CHEST PAIN [None]
  - CONFUSIONAL STATE [None]
  - CORONARY ARTERY DISEASE [None]
  - DRUG DOSE OMISSION [None]
  - DRUG SCREEN POSITIVE [None]
  - ELECTROCARDIOGRAM ST-T CHANGE [None]
  - HYPOTHYROIDISM [None]
  - MUSCULOSKELETAL CHEST PAIN [None]
  - OVERWEIGHT [None]
  - POST PROCEDURAL COMPLICATION [None]
  - QUADRUPLE VESSEL BYPASS GRAFT [None]
  - RHABDOMYOLYSIS [None]
  - THYROXINE FREE DECREASED [None]
  - TREATMENT NONCOMPLIANCE [None]
  - VASCULAR BYPASS GRAFT [None]
